FAERS Safety Report 5660265-5 (Version None)
Quarter: 2008Q2

REPORT INFORMATION
  Report Type: 
  Country: None (occurrence: None)
  Receive Date: 20080212
  Receipt Date: 20070108
  Transmission Date: 20081010
  Serious: Yes (Other)
  Sender: FDA-Public Use
  Company Number: MC200700010

PATIENT
  Sex: Female

DRUGS (2)
  1. ANGIOMAX [Suspect]
     Indication: PERIPHERAL REVASCULARISATION
     Dosage: BOLUS, IV BOLUS
     Route: 040
     Dates: start: 20070105, end: 20070105
  2. ANGIOMAX [Suspect]
     Indication: PERIPHERAL REVASCULARISATION
     Dosage: BOLUS, IV BOLUS
     Route: 040
     Dates: start: 20070105

REACTIONS (1)
  - THROMBOSIS [None]
